FAERS Safety Report 22151915 (Version 2)
Quarter: 2023Q2

REPORT INFORMATION
  Report Type: Report from Study
  Country: JP (occurrence: None)
  Receive Date: 20230329
  Receipt Date: 20230617
  Transmission Date: 20230722
  Serious: Yes (Other)
  Sender: FDA-Public Use
  Company Number: JP-ROCHE-3318031

PATIENT
  Age: 52 Year
  Sex: Female

DRUGS (12)
  1. LENALIDOMIDE [Suspect]
     Active Substance: LENALIDOMIDE
     Indication: Diffuse large B-cell lymphoma
     Route: 048
     Dates: start: 20170426
  2. RITUXIMAB [Suspect]
     Active Substance: RITUXIMAB
     Indication: Diffuse large B-cell lymphoma
     Dosage: ON DAY 1
     Route: 041
     Dates: start: 20170425, end: 2017
  3. RITUXIMAB [Suspect]
     Active Substance: RITUXIMAB
     Dosage: ON DAY 1
     Route: 041
     Dates: start: 20170821
  4. CYCLOPHOSPHAMIDE [Suspect]
     Active Substance: CYCLOPHOSPHAMIDE
     Indication: Diffuse large B-cell lymphoma
     Dosage: ON DAY 1 THE LAST CYCLE WAS ON 22/AUG/2017,
     Route: 042
     Dates: start: 20170426, end: 2017
  5. DOXORUBICIN [Suspect]
     Active Substance: DOXORUBICIN
     Indication: Diffuse large B-cell lymphoma
     Dosage: ON DAY 1 LAST CYCLE WAS ON 22/AUG/2017
     Route: 042
     Dates: start: 20170426, end: 2017
  6. VINCRISTINE [Suspect]
     Active Substance: VINCRISTINE
     Indication: Diffuse large B-cell lymphoma
     Dosage: ON DAY 1 LAST CYCLE WAS ON 22/AUG/2017
     Route: 042
     Dates: start: 20170426, end: 2017
  7. PREDNISONE [Suspect]
     Active Substance: PREDNISONE
     Indication: Diffuse large B-cell lymphoma
     Dosage: ON DAY 1 TO DAY 5 OF EACH 21 DAY THE LAST CYCLE WAS FROM 22/AUG/2017 AND 26/AUG/2017
     Route: 048
     Dates: start: 20170426, end: 2017
  8. IFOSFAMIDE [Concomitant]
     Active Substance: IFOSFAMIDE
  9. CISPLATIN [Concomitant]
     Active Substance: CISPLATIN
  10. ETOPOSIDE [Concomitant]
     Active Substance: ETOPOSIDE
  11. CYTARABINE [Concomitant]
     Active Substance: CYTARABINE
  12. CARBOPLATIN [Concomitant]
     Active Substance: CARBOPLATIN

REACTIONS (1)
  - Endometrial adenocarcinoma [Not Recovered/Not Resolved]

NARRATIVE: CASE EVENT DATE: 20201127
